FAERS Safety Report 4581741-2 (Version None)
Quarter: 2005Q1

REPORT INFORMATION
  Report Type: 
  Country: None (occurrence: None)
  Receive Date: 20050214
  Receipt Date: 20040223
  Transmission Date: 20050727
  Serious: No
  Sender: FDA-Public Use
  Company Number: US-GLAXOSMITHKLINE-A0499443A

PATIENT
  Sex: Male

DRUGS (8)
  1. LAMICTAL [Suspect]
     Indication: BIPOLAR DISORDER
     Dosage: 75MG PER DAY
     Route: 048
  2. VALPROIC ACID [Concomitant]
  3. ZOCOR [Concomitant]
  4. TENORMIN [Concomitant]
  5. PROCRIT [Concomitant]
  6. AVODART [Concomitant]
  7. CENTRUM VITAMINS [Concomitant]
  8. FLOMAX [Concomitant]

REACTIONS (1)
  - BLOOD CREATININE INCREASED [None]
